FAERS Safety Report 8488949-4 (Version None)
Quarter: 2012Q3

REPORT INFORMATION
  Report Type: 
  Country: None (occurrence: None)
  Receive Date: 20120705
  Receipt Date: 20120702
  Transmission Date: 20120928
  Serious: No
  Sender: FDA-Public Use
  Company Number: US-PFIZER INC-2012158661

PATIENT
  Sex: Male
  Weight: 69.4 kg

DRUGS (2)
  1. SUTENT [Suspect]
     Indication: HEPATIC CANCER METASTATIC
     Dosage: 12.5 MG, 3X/DAY
     Dates: start: 20120618
  2. ANDROGEL [Concomitant]
     Indication: BLOOD TESTOSTERONE ABNORMAL
     Dosage: UNK

REACTIONS (8)
  - ORAL DISCOMFORT [None]
  - SKIN EXFOLIATION [None]
  - DIARRHOEA [None]
  - OFF LABEL USE [None]
  - DYSGEUSIA [None]
  - FATIGUE [None]
  - NAUSEA [None]
  - PRURITUS [None]
